FAERS Safety Report 8767314 (Version 2)
Quarter: 2012Q4

REPORT INFORMATION
  Report Type: 
  Country: JP (occurrence: JP)
  Receive Date: 20120904
  Receipt Date: 20120904
  Transmission Date: 20130627
  Serious: Yes (Hospitalization, Other)
  Sender: FDA-Public Use
  Company Number: PHHY2012JP069110

PATIENT
  Age: 1 Year
  Sex: Male
  Weight: 13 kg

DRUGS (7)
  1. TEGRETOL [Suspect]
     Indication: CONVULSION
     Dosage: 50 mg, daily
     Route: 048
     Dates: start: 20120710, end: 20120712
  2. TEGRETOL [Suspect]
     Dosage: 100 mg, Daily
     Route: 048
     Dates: start: 20120713, end: 20120730
  3. TEGRETOL [Suspect]
     Dosage: 75 mg, BID (150 mg)
     Route: 048
     Dates: start: 20120730, end: 20120731
  4. FRAGMIN [Concomitant]
     Indication: ANTICOAGULANT THERAPY
     Dosage: 800 IU, UNK
     Route: 041
     Dates: start: 20120713, end: 20120720
  5. RAVONAL [Concomitant]
     Indication: SEDATION
     Dosage: 100 mg, UNK
     Route: 042
     Dates: start: 20120723
  6. DEXAMETHASONE SODIUM PHOSPHATE [Concomitant]
     Indication: ENCEPHALOPATHY
     Dosage: 6.6 mg, UNK
     Route: 042
     Dates: start: 20120712, end: 20120720
  7. ACICLOVIR [Concomitant]
     Indication: HERPES VIRUS INFECTION
     Dosage: 100 mg, UNK
     Dates: start: 20120712, end: 20120720

REACTIONS (10)
  - Infection [Unknown]
  - Febrile convulsion [Recovering/Resolving]
  - Convulsion [Recovering/Resolving]
  - Depressed level of consciousness [Unknown]
  - Stevens-Johnson syndrome [Recovered/Resolved]
  - Neutrophil count decreased [Recovered/Resolved]
  - Rash [Recovered/Resolved]
  - Enanthema [Recovered/Resolved]
  - Aspartate aminotransferase increased [Recovered/Resolved]
  - Alanine aminotransferase increased [Recovering/Resolving]
